FAERS Safety Report 7503714-X (Version None)
Quarter: 2011Q2

REPORT INFORMATION
  Report Type: 
  Country: None (occurrence: None)
  Receive Date: 20110525
  Receipt Date: 20110516
  Transmission Date: 20111010
  Serious: Yes (Hospitalization, Other)
  Sender: FDA-Public Use
  Company Number: US-GENZYME-CLOF-1001475

PATIENT
  Sex: Male
  Weight: 23.9 kg

DRUGS (8)
  1. THIOTEPA [Suspect]
     Indication: ACUTE LYMPHOCYTIC LEUKAEMIA
     Dosage: 10 MG/KG, UNK
     Route: 065
     Dates: start: 20110207, end: 20110207
  2. CLOLAR [Suspect]
     Dosage: UNK
     Route: 065
     Dates: start: 20110103, end: 20110103
  3. CYTARABINE [Suspect]
     Indication: ACUTE LYMPHOCYTIC LEUKAEMIA
     Dosage: UNK
     Route: 065
     Dates: start: 20110103, end: 20110103
  4. LEVALBUTEROL HYDROCHLORIDE [Concomitant]
     Indication: OXYGEN SATURATION
     Dosage: UNK
     Route: 065
     Dates: start: 20110201
  5. CLOLAR [Suspect]
     Indication: ACUTE LYMPHOCYTIC LEUKAEMIA
     Dosage: 20 MG/M2, UNK
     Route: 065
     Dates: start: 20110202, end: 20110206
  6. CYTARABINE [Suspect]
     Dosage: UNK
     Route: 037
     Dates: start: 20110125, end: 20110125
  7. MELPHALAN HYDROCHLORIDE [Suspect]
     Indication: ACUTE LYMPHOCYTIC LEUKAEMIA
     Dosage: 70 MG/M2, UNK
     Route: 065
     Dates: start: 20110208, end: 20110208
  8. FUROSEMIDE [Concomitant]
     Indication: FLUID RETENTION
     Dosage: IV
     Route: 042
     Dates: start: 20110211, end: 20110407

REACTIONS (7)
  - HYPOXIA [None]
  - CYTOMEGALOVIRUS INFECTION [None]
  - ADENOVIRUS INFECTION [None]
  - HYPOTENSION [None]
  - PNEUMONITIS [None]
  - BK VIRUS INFECTION [None]
  - METAPNEUMOVIRUS INFECTION [None]
